FAERS Safety Report 6072586-5 (Version None)
Quarter: 2009Q1

REPORT INFORMATION
  Report Type: 
  Country: None (occurrence: None)
  Receive Date: 20090210
  Receipt Date: 20090128
  Transmission Date: 20090719
  Serious: Yes (Death, Other)
  Sender: FDA-Public Use
  Company Number: US-WATSON-2009-00767

PATIENT
  Age: 38 Year
  Sex: Male

DRUGS (2)
  1. FORTAMET [Suspect]
     Indication: DRUG USE FOR UNKNOWN INDICATION
     Dosage: AMOUNTS UNKOWN
     Route: 048
     Dates: end: 20070101
  2. ACETAMINOPHEN AND CODEINE PHOSPHATE [Suspect]
     Indication: DRUG USE FOR UNKNOWN INDICATION
     Dosage: ACETAMINOPHEN 300 MG/CODEINE 30 MG TABLETS (AMOUNTS UNKNOWN)
     Route: 048
     Dates: end: 20070101

REACTIONS (5)
  - ACIDOSIS [None]
  - ELECTROMECHANICAL DISSOCIATION [None]
  - HYPOGLYCAEMIA [None]
  - HYPOTENSION [None]
  - UNRESPONSIVE TO STIMULI [None]
